FAERS Safety Report 17902382 (Version 2)
Quarter: 2020Q3

REPORT INFORMATION
  Report Type: Report from Study
  Country: None (occurrence: US)
  Receive Date: 20200617
  Receipt Date: 20200818
  Transmission Date: 20201103
  Serious: Yes (Hospitalization)
  Sender: FDA-Public Use
  Company Number: US-ABBVIE-20K-163-3443013-00

PATIENT
  Age: 80 Year
  Sex: Male
  Weight: 91.71 kg

DRUGS (11)
  1. HUMIRA [Suspect]
     Active Substance: ADALIMUMAB
     Indication: COLITIS ULCERATIVE
  2. FOLIC ACID. [Concomitant]
     Active Substance: FOLIC ACID
     Indication: SUPPLEMENTATION THERAPY
  3. HUMIRA [Suspect]
     Active Substance: ADALIMUMAB
     Indication: CROHN^S DISEASE
     Route: 058
     Dates: start: 201810
  4. VITAMIN B12 [Concomitant]
     Active Substance: CYANOCOBALAMIN
     Indication: SUPPLEMENTATION THERAPY
  5. VITAMIN D3 [Concomitant]
     Active Substance: CHOLECALCIFEROL
     Indication: SUPPLEMENTATION THERAPY
  6. ATORVASTATIN [Concomitant]
     Active Substance: ATORVASTATIN
     Indication: BLOOD CHOLESTEROL INCREASED
  7. FINASTERIDE. [Concomitant]
     Active Substance: FINASTERIDE
     Indication: BENIGN PROSTATIC HYPERPLASIA
  8. IMODIUM [Concomitant]
     Active Substance: LOPERAMIDE HYDROCHLORIDE
     Indication: DIARRHOEA
  9. LUMIGAN [Concomitant]
     Active Substance: BIMATOPROST
     Indication: GLAUCOMA
  10. FENOFIBRATE. [Concomitant]
     Active Substance: FENOFIBRATE
     Indication: BLOOD TRIGLYCERIDES
  11. IRON [Concomitant]
     Active Substance: IRON
     Indication: SUPPLEMENTATION THERAPY

REACTIONS (5)
  - Gastrointestinal obstruction [Recovered/Resolved]
  - Fear [Not Recovered/Not Resolved]
  - Hospitalisation [Recovered/Resolved]
  - Ileectomy [Recovered/Resolved]
  - Food intolerance [Unknown]

NARRATIVE: CASE EVENT DATE: 20200609
